FAERS Safety Report 5778325-7 (Version None)
Quarter: 2008Q2

REPORT INFORMATION
  Report Type: 
  Country: None (occurrence: None)
  Receive Date: 20080619
  Receipt Date: 20080610
  Transmission Date: 20081010
  Serious: Yes (Other)
  Sender: FDA-Public Use
  Company Number: US-ROCHE-543435

PATIENT
  Sex: Male

DRUGS (3)
  1. PEG-INTERFERON A-2A (RO 25-8310) [Suspect]
     Indication: HEPATITIS C
     Dosage: THERAPY COMPLETED
     Route: 065
     Dates: start: 20071107
  2. RIBAVIRIN [Suspect]
     Indication: HEPATITIS C
     Dosage: THERAPY COMPLETED
     Route: 065
     Dates: start: 20071107
  3. FACTOR VIII [Concomitant]

REACTIONS (1)
  - EAR HAEMORRHAGE [None]
